FAERS Safety Report 9445844 (Version 1)
Quarter: 2013Q3

REPORT INFORMATION
  Report Type: Spontaneous
  Country: BR (occurrence: BR)
  Receive Date: 20130807
  Receipt Date: 20130807
  Transmission Date: 20140515
  Serious: Yes (Death)
  Sender: FDA-Public Use
  Company Number: BR-ROCHE-1258378

PATIENT
  Sex: Female

DRUGS (5)
  1. DIAZEPAM [Suspect]
     Indication: PRODUCT USED FOR UNKNOWN INDICATION
     Route: 065
  2. TEGRETOL [Concomitant]
  3. SIMVASTATIN [Concomitant]
  4. HALDOL [Concomitant]
  5. AMPLICTIL [Concomitant]

REACTIONS (3)
  - Death [Fatal]
  - Incoherent [Unknown]
  - Aggression [Unknown]
